FAERS Safety Report 23971622 (Version 1)
Quarter: 2024Q2

REPORT INFORMATION
  Report Type: Spontaneous
  Country: KR (occurrence: KR)
  Receive Date: 20240613
  Receipt Date: 20240613
  Transmission Date: 20240715
  Serious: Yes (Other)
  Sender: FDA-Public Use
  Company Number: KR-PFIZER INC-202400191536

PATIENT
  Age: 79 Year
  Sex: Female

DRUGS (10)
  1. PRISTIQ EXTENDED-RELEASE [Suspect]
     Active Substance: DESVENLAFAXINE SUCCINATE
     Dosage: 1 DF, 1X/DAY
     Dates: start: 20230531, end: 20230712
  2. MOSAPRIDE CITRATE DIHYDRATE [Suspect]
     Active Substance: MOSAPRIDE CITRATE DIHYDRATE
     Dosage: 1 DF, 3X/DAY
     Dates: start: 20230531, end: 20230712
  3. PENTOSAN POLYSULFATE SODIUM [Suspect]
     Active Substance: PENTOSAN POLYSULFATE SODIUM
     Dosage: 1 DF, 3X/DAY
     Dates: start: 20230531, end: 20230712
  4. MAGNESIUM HYDROXIDE [Suspect]
     Active Substance: MAGNESIUM HYDROXIDE
     Dosage: 2 DF, 3X/DAY
     Dates: start: 20230531, end: 20230712
  5. DOMPERIDONE [Suspect]
     Active Substance: DOMPERIDONE
     Dosage: 0.5 DF, 3X/DAY
     Dates: start: 20230531, end: 20230712
  6. ACETAMINOPHEN\TRAMADOL HYDROCHLORIDE [Suspect]
     Active Substance: ACETAMINOPHEN\TRAMADOL HYDROCHLORIDE
     Dosage: 0.5 DF, 3X/DAY
     Dates: start: 20230531, end: 20230712
  7. ALPRAZOLAM [Suspect]
     Active Substance: ALPRAZOLAM
     Dosage: 0.5 DF, 1X/DAY
     Dates: start: 20230531, end: 20230712
  8. ROSUVASTATIN CALCIUM [Suspect]
     Active Substance: ROSUVASTATIN CALCIUM
     Dosage: 1 DF, 1X/DAY
     Dates: start: 20230531, end: 20230712
  9. EDOXABAN TOSYLATE [Suspect]
     Active Substance: EDOXABAN TOSYLATE
     Dosage: 1 DF, 1X/DAY
     Dates: start: 20230531, end: 20230712
  10. OLMESARTAN MEDOXOMIL [Suspect]
     Active Substance: OLMESARTAN MEDOXOMIL
     Dosage: 0.5 DF, 1X/DAY
     Dates: start: 20230531, end: 20230712

REACTIONS (1)
  - Hallucination [Recovering/Resolving]
